FAERS Safety Report 4303319-8 (Version None)
Quarter: 2004Q1

REPORT INFORMATION
  Report Type: 
  Country: None (occurrence: None)
  Receive Date: 20040223
  Receipt Date: 20040209
  Transmission Date: 20041129
  Serious: Yes (Other)
  Sender: FDA-Public Use
  Company Number: FR-SHR-04-020988

PATIENT
  Age: 44 Year
  Sex: Female

DRUGS (4)
  1. BETAFERON(INTERFERON BETA-1B) INJECTION, 250UG [Suspect]
     Indication: MULTIPLE SCLEROSIS
     Dosage: 8 MIU/ML, EVERY 2D, SUBCUTANEOUS
     Route: 058
     Dates: start: 20000320
  2. TEGRETOL [Concomitant]
  3. CHRONADALATE [Concomitant]
  4. OXYBUTYNIN CHLORIDE (OXYBUTYNIN HYDROCHLORIDE) [Concomitant]

REACTIONS (1)
  - PHLEBITIS [None]
